FAERS Safety Report 24131674 (Version 1)
Quarter: 2024Q3

REPORT INFORMATION
  Report Type: Spontaneous
  Country: US (occurrence: US)
  Receive Date: 20240724
  Receipt Date: 20240724
  Transmission Date: 20241017
  Serious: Yes (Hospitalization, Other)
  Sender: AMGEN
  Company Number: US-AMGEN-USASP2024142511

PATIENT
  Sex: Male

DRUGS (2)
  1. BEVACIZUMAB [Suspect]
     Active Substance: BEVACIZUMAB
     Indication: Hepatocellular carcinoma
     Dosage: UNK
     Route: 065
  2. ATEZOLIZUMAB [Suspect]
     Active Substance: ATEZOLIZUMAB
     Indication: Hepatocellular carcinoma
     Dosage: UNK
     Route: 065

REACTIONS (18)
  - Immune thrombocytopenia [Unknown]
  - Tachycardia [Unknown]
  - Rash maculo-papular [Unknown]
  - Rash erythematous [Unknown]
  - Skin plaque [Unknown]
  - Pancytopenia [Unknown]
  - Vomiting [Unknown]
  - Headache [Unknown]
  - Fatigue [Recovered/Resolved]
  - Pain [Unknown]
  - Febrile neutropenia [Unknown]
  - Immune-mediated enterocolitis [Recovered/Resolved]
  - Cytokine release syndrome [Unknown]
  - Dry mouth [Unknown]
  - Off label use [Unknown]
  - Drug effective for unapproved indication [Unknown]
  - Decreased appetite [Unknown]
  - Myalgia [Recovered/Resolved]
